FAERS Safety Report 9624544 (Version 3)
Quarter: 2013Q4

REPORT INFORMATION
  Report Type: Spontaneous
  Country: DK (occurrence: DK)
  Receive Date: 20131015
  Receipt Date: 20131028
  Transmission Date: 20140711
  Serious: Yes (Death, Life-Threatening)
  Sender: FDA-Public Use
  Company Number: DK-TEVA-436681ISR

PATIENT
  Age: 1 Year
  Sex: Female
  Weight: 9 kg

DRUGS (12)
  1. BACTRIM [Suspect]
     Indication: COMBINED IMMUNODEFICIENCY
     Dosage: 5ML ONCE DAILY AT SATURDAYS AND SUNDAYS, STRENGTH:40+8MG/ML
     Route: 048
     Dates: start: 201302
  2. BIKLIN [Interacting]
     Indication: DISSEMINATED TUBERCULOSIS
     Dosage: 175 MILLIGRAM DAILY;
     Route: 042
     Dates: start: 20130524
  3. AVELOX [Interacting]
     Indication: DISSEMINATED TUBERCULOSIS
     Dosage: 90 MILLIGRAM DAILY;
     Route: 042
     Dates: start: 20130524
  4. EREMFAT I.V. ^RIEMSER^ [Interacting]
     Indication: DISSEMINATED TUBERCULOSIS
     Dosage: 175 MILLIGRAM DAILY;
     Route: 042
     Dates: start: 20130524
  5. ISONIAZID [Interacting]
     Indication: DISSEMINATED TUBERCULOSIS
     Dosage: 135 MILLIGRAM DAILY;
     Route: 042
     Dates: start: 20130524
  6. MYAMBUTOL [Interacting]
     Indication: DISSEMINATED TUBERCULOSIS
     Dosage: 200 MILLIGRAM DAILY;
     Route: 048
     Dates: start: 20130524
  7. VOLTAREN [Interacting]
     Indication: PAIN
     Dosage: DOSAGE: 12.5 MG SUPPOSITORY AS NEEDED MAXIMUM 3 TIMES DAILY
     Route: 054
     Dates: start: 201305
  8. PARACETAMOL [Interacting]
     Indication: PAIN
     Dosage: DOSAGE: 5 ML AS NEEDED MAXIMUM 4 TIMES DAILY. STRENGTH: 24 MG/ML
     Route: 048
     Dates: start: 201302
  9. DIFLUCAN [Interacting]
     Indication: COMBINED IMMUNODEFICIENCY
     Dosage: 2 ML DAILY; DOSAGE: 10 MG/ML
     Route: 048
     Dates: start: 201302
  10. ZOVIRAX [Interacting]
     Indication: COMBINED IMMUNODEFICIENCY
     Dosage: 5 ML DAILY; DOSAGE: 80 MG/ML
     Route: 048
     Dates: start: 201302
  11. PROLEUKIN [Interacting]
     Indication: DISSEMINATED TUBERCULOSIS
     Dosage: DOSAGE: INCREASED FROM 0,01 MIE ONCE DAILY TO 0,27 MIE
     Route: 058
     Dates: start: 20130822
  12. PRIVIGEN [Concomitant]
     Indication: COMBINED IMMUNODEFICIENCY
     Dates: start: 201302

REACTIONS (7)
  - Respiratory arrest [Fatal]
  - Cardiac arrest [Fatal]
  - Abdominal distension [Unknown]
  - Oedema peripheral [Unknown]
  - Dyskinesia [Unknown]
  - Drug interaction [Unknown]
  - Vomiting [Unknown]
